FAERS Safety Report 11217894 (Version 1)
Quarter: 2015Q2

REPORT INFORMATION
  Report Type: Spontaneous
  Country: US (occurrence: US)
  Receive Date: 20150625
  Receipt Date: 20150625
  Transmission Date: 20150821
  Serious: Yes (Other)
  Sender: FDA-Public Use
  Company Number: US-JNJFOC-20150612813

PATIENT
  Sex: Male

DRUGS (1)
  1. RISPERDAL [Suspect]
     Active Substance: RISPERIDONE
     Indication: SCHIZOPHRENIA
     Route: 048

REACTIONS (3)
  - Antipsychotic drug level increased [Not Recovered/Not Resolved]
  - Akathisia [Not Recovered/Not Resolved]
  - Blastomycosis [Not Recovered/Not Resolved]

NARRATIVE: CASE EVENT DATE: 2015
